FAERS Safety Report 15639245 (Version 2)
Quarter: 2018Q4

REPORT INFORMATION
  Report Type: Spontaneous
  Country: US (occurrence: US)
  Receive Date: 20181120
  Receipt Date: 20181217
  Transmission Date: 20190205
  Serious: Yes (Other)
  Sender: FDA-Public Use
  Company Number: US-AKORN PHARMACEUTICALS-2018AKN01776

PATIENT
  Age: 17 Year
  Sex: Female
  Weight: 55.33 kg

DRUGS (1)
  1. MYORISAN [Suspect]
     Active Substance: ISOTRETINOIN
     Indication: ACNE
     Dosage: 40 MG, 1X/DAY
     Route: 048
     Dates: start: 20180829, end: 20181015

REACTIONS (3)
  - Off label use [Recovered/Resolved]
  - Affect lability [Unknown]
  - Dry skin [Unknown]

NARRATIVE: CASE EVENT DATE: 2018
